FAERS Safety Report 19844783 (Version 2)
Quarter: 2021Q3

REPORT INFORMATION
  Report Type: Spontaneous
  Country: CN (occurrence: CN)
  Receive Date: 20210917
  Receipt Date: 20210929
  Transmission Date: 20211014
  Serious: Yes (Other)
  Sender: FDA-Public Use
  Company Number: CN-TOPROL-2021000196

PATIENT
  Age: 74 Year
  Sex: Male

DRUGS (1)
  1. BETALOC [Suspect]
     Active Substance: METOPROLOL
     Dosage: EVERY MORNING FOR THREE OR FOUR YEARS.
     Route: 048

REACTIONS (3)
  - Heart rate decreased [Not Recovered/Not Resolved]
  - Cardiac failure [Unknown]
  - Hypotension [Not Recovered/Not Resolved]
